FAERS Safety Report 6801127-7 (Version None)
Quarter: 2010Q2

REPORT INFORMATION
  Report Type: 
  Country: None (occurrence: None)
  Receive Date: 20100629
  Receipt Date: 20100621
  Transmission Date: 20101027
  Serious: Yes (Life-Threatening, Hospitalization)
  Sender: FDA-Public Use
  Company Number: US-PFIZER INC-2010074690

PATIENT
  Sex: Male

DRUGS (7)
  1. LIPITOR [Suspect]
     Dosage: 80 MG, 1X/DAY
     Dates: start: 20100217, end: 20100224
  2. BLINDED THERAPY [Suspect]
     Indication: THROMBOSIS PROPHYLAXIS
     Dosage: 10 MG, 1X/DAY
     Route: 048
     Dates: start: 20100222
  3. COREG [Concomitant]
     Dosage: UNK
     Dates: start: 20100217, end: 20100223
  4. LASIX [Concomitant]
     Dosage: UNK
     Dates: start: 20100220
  5. ACETYLSALICYLIC ACID [Concomitant]
     Dosage: UNK
     Dates: start: 20100218
  6. CLOPIDOGREL BISULFATE [Concomitant]
     Dosage: UNK
     Dates: start: 20100218
  7. ENOXAPARIN [Concomitant]
     Dosage: UNK
     Dates: start: 20100224, end: 20100301

REACTIONS (2)
  - CARDIAC FAILURE [None]
  - HEPATOTOXICITY [None]
